FAERS Safety Report 8280721-3 (Version None)
Quarter: 2012Q2

REPORT INFORMATION
  Report Type: 
  Country: None (occurrence: None)
  Receive Date: 20120412
  Receipt Date: 20120224
  Transmission Date: 20120825
  Serious: No
  Sender: FDA-Public Use
  Company Number: US-ASTRAZENECA-2012SE02451

PATIENT
  Age: 54 Year
  Sex: Female

DRUGS (3)
  1. NEXIUM [Suspect]
     Route: 048
  2. PRILOSEC [Suspect]
     Route: 048
  3. OVER THE COUNTER MEDICATIONS [Suspect]
     Route: 065

REACTIONS (9)
  - ABDOMINAL DISCOMFORT [None]
  - FIBROMYALGIA [None]
  - ABDOMINAL DISTENSION [None]
  - PYREXIA [None]
  - ABDOMINAL PAIN UPPER [None]
  - GASTROOESOPHAGEAL REFLUX DISEASE [None]
  - WEIGHT DECREASED [None]
  - VOMITING [None]
  - DRUG INEFFECTIVE [None]
